FAERS Safety Report 11255160 (Version 3)
Quarter: 2017Q4

REPORT INFORMATION
  Report Type: Spontaneous
  Country: GB (occurrence: GB)
  Receive Date: 20150709
  Receipt Date: 20171004
  Transmission Date: 20180320
  Serious: Yes (Other)
  Sender: FDA-Public Use
  Company Number: GB-EISAI MEDICAL RESEARCH-EC-2015-007318

PATIENT
  Age: 63 Year
  Sex: Female
  Weight: 80.73 kg

DRUGS (7)
  1. FYCOMPA [Suspect]
     Active Substance: PERAMPANEL
     Indication: FOCAL DYSCOGNITIVE SEIZURES
     Dosage: UNKNOWN
     Route: 048
     Dates: start: 201503, end: 2015
  2. KEPPRA [Concomitant]
     Active Substance: LEVETIRACETAM
     Indication: PRODUCT USED FOR UNKNOWN INDICATION
     Dosage: UNKNOWN
     Route: 065
  3. TROBALT [Concomitant]
     Active Substance: EZOGABINE
     Indication: PRODUCT USED FOR UNKNOWN INDICATION
     Dosage: UNKNOWN
     Route: 065
  4. FYCOMPA [Suspect]
     Active Substance: PERAMPANEL
     Route: 048
     Dates: start: 2015, end: 201505
  5. FYCOMPA [Suspect]
     Active Substance: PERAMPANEL
     Route: 048
     Dates: start: 201505
  6. FYCOMPA [Suspect]
     Active Substance: PERAMPANEL
     Route: 048
  7. VIMPAT [Concomitant]
     Active Substance: LACOSAMIDE
     Indication: PRODUCT USED FOR UNKNOWN INDICATION
     Dosage: UNKNOWN
     Route: 065

REACTIONS (17)
  - Depression [Unknown]
  - Poor personal hygiene [Not Recovered/Not Resolved]
  - Social avoidant behaviour [Not Recovered/Not Resolved]
  - Abnormal weight gain [Not Recovered/Not Resolved]
  - Anger [Recovered/Resolved with Sequelae]
  - Hostility [Recovered/Resolved with Sequelae]
  - Off label use [Not Recovered/Not Resolved]
  - Thinking abnormal [Not Recovered/Not Resolved]
  - Suicidal ideation [Not Recovered/Not Resolved]
  - Aggression [Recovered/Resolved with Sequelae]
  - Repetitive speech [Unknown]
  - Memory impairment [Unknown]
  - Schizophreniform disorder [Not Recovered/Not Resolved]
  - Suspiciousness [Not Recovered/Not Resolved]
  - Paranoia [Recovered/Resolved with Sequelae]
  - Confusional state [Recovered/Resolved with Sequelae]
  - Irritability [Recovered/Resolved with Sequelae]

NARRATIVE: CASE EVENT DATE: 2015
